FAERS Safety Report 8572884-7 (Version None)
Quarter: 2012Q3

REPORT INFORMATION
  Report Type: 
  Country: None (occurrence: None)
  Receive Date: 20120806
  Receipt Date: 20120404
  Transmission Date: 20120928
  Serious: Yes (Other)
  Sender: FDA-Public Use
  Company Number: GB-GLAXOSMITHKLINE-A0974237A

PATIENT
  Age: 63 Year
  Sex: Female
  Weight: 85 kg

DRUGS (2)
  1. NICORETTE [Suspect]
     Dosage: 2SPR WEEKLY
     Route: 045
     Dates: start: 20110101
  2. NICOTINE [Suspect]
     Indication: WITHDRAWAL SYNDROME

REACTIONS (5)
  - IRRITABILITY [None]
  - INTENTIONAL DRUG MISUSE [None]
  - NIGHT SWEATS [None]
  - WITHDRAWAL SYNDROME [None]
  - NICOTINE DEPENDENCE [None]
